FAERS Safety Report 23311782 (Version 1)
Quarter: 2023Q4

REPORT INFORMATION
  Report Type: Spontaneous
  Country: US (occurrence: None)
  Receive Date: 20231218
  Receipt Date: 20231218
  Transmission Date: 20240110
  Serious: Yes (Hospitalization)
  Sender: FDA-Public Use
  Company Number: None

PATIENT
  Age: 68 Year
  Sex: Female
  Weight: 61.3 kg

DRUGS (2)
  1. FEDRATINIB [Suspect]
     Active Substance: FEDRATINIB
     Indication: Myelofibrosis
     Dosage: FREQUENCY : DAILY;?
     Route: 048
     Dates: start: 20231208
  2. cefepime  1,000 mg, IV, Q12HR [Concomitant]
     Dates: start: 20231215

REACTIONS (3)
  - Pyrexia [None]
  - Cough [None]
  - Upper-airway cough syndrome [None]

NARRATIVE: CASE EVENT DATE: 20231215
